FAERS Safety Report 4263821-4 (Version None)
Quarter: 2004Q1

REPORT INFORMATION
  Report Type: 
  Country: None (occurrence: None)
  Receive Date: 20040105
  Receipt Date: 20040105
  Transmission Date: 20041129
  Serious: Yes (Other)
  Sender: FDA-Public Use
  Company Number: None

PATIENT
  Age: 31 Year
  Sex: Female

DRUGS (1)
  1. NEURONTIN [Suspect]
     Indication: TINNITUS
     Dosage: 300 MG PO 7 DAYS, THEN 300 MG, TID 7 DAYS
     Route: 048
     Dates: start: 20031215

REACTIONS (4)
  - HERPES SIMPLEX [None]
  - MOOD ALTERED [None]
  - SEXUAL DYSFUNCTION [None]
  - STOMATITIS [None]
